FAERS Safety Report 17657208 (Version 2)
Quarter: 2020Q2

REPORT INFORMATION
  Report Type: Spontaneous
  Country: US (occurrence: US)
  Receive Date: 20200410
  Receipt Date: 20200512
  Transmission Date: 20200713
  Serious: No
  Sender: FDA-Public Use
  Company Number: US-TEVA-2020-US-1220739

PATIENT
  Age: 71 Year
  Sex: Female

DRUGS (1)
  1. PIMECROLIMUS. [Suspect]
     Active Substance: PIMECROLIMUS
     Indication: SKIN DISORDER
     Dosage: CREAM THREE TIMES TO CLEAR UP HER SKIN
     Route: 065

REACTIONS (4)
  - Blister [Unknown]
  - Madarosis [Unknown]
  - Skin exfoliation [Unknown]
  - Adverse event [Unknown]
